FAERS Safety Report 16635700 (Version 6)
Quarter: 2022Q1

REPORT INFORMATION
  Report Type: Report from Study
  Country: US (occurrence: None)
  Receive Date: 20190726
  Receipt Date: 20220211
  Transmission Date: 20220423
  Serious: Yes (Death, Life-Threatening, Hospitalization, Other)
  Sender: FDA-Public Use
  Company Number: US-ROCHE-2358675

PATIENT
  Age: 63 Year
  Sex: Male
  Weight: 72.8 kg

DRUGS (6)
  1. ATEZOLIZUMAB [Suspect]
     Active Substance: ATEZOLIZUMAB
     Indication: Pleural mesothelioma malignant
     Dosage: LAST DOSE: 05/JUN/2019, 13/MAY/2019, 22/APR/2019
     Route: 042
     Dates: start: 20190325
  2. ATEZOLIZUMAB [Suspect]
     Active Substance: ATEZOLIZUMAB
     Indication: Mesothelioma malignant
  3. CISPLATIN [Suspect]
     Active Substance: CISPLATIN
     Indication: Pleural mesothelioma malignant
     Dosage: LAST DOSE: 05/JUN/2019, 13/MAY/2019, 22/APR/2019
     Route: 042
     Dates: start: 20190325, end: 20190605
  4. CISPLATIN [Suspect]
     Active Substance: CISPLATIN
     Indication: Mesothelioma malignant
  5. PEMETREXED [Suspect]
     Active Substance: PEMETREXED
     Indication: Pleural mesothelioma malignant
     Dosage: LAST DOSE: 05/JUN/2019, 13/MAY/2019, 22/APR/2019
     Route: 042
     Dates: start: 20190325, end: 20190605
  6. PEMETREXED [Suspect]
     Active Substance: PEMETREXED
     Indication: Mesothelioma malignant

REACTIONS (15)
  - Sepsis [Fatal]
  - Respiratory failure [Unknown]
  - Renal failure [Unknown]
  - Pneumonitis [Unknown]
  - Pneumonia [Unknown]
  - Pneumonia [Recovering/Resolving]
  - Dyspnoea [Unknown]
  - Hyponatraemia [Unknown]
  - Renal failure [Unknown]
  - Pneumonia [Unknown]
  - Pneumonitis [Unknown]
  - Respiratory failure [Unknown]
  - Sepsis [Unknown]
  - Pneumonia [Fatal]
  - Pneumonia [Unknown]

NARRATIVE: CASE EVENT DATE: 20190529
